FAERS Safety Report 20133231 (Version 1)
Quarter: 2021Q4

REPORT INFORMATION
  Report Type: Report from Study
  Country: GB (occurrence: GB)
  Receive Date: 20211201
  Receipt Date: 20211201
  Transmission Date: 20220304
  Serious: Yes (Hospitalization)
  Sender: FDA-Public Use
  Company Number: GB-TAKEDA-2021TUS073463

PATIENT
  Age: 4 Year
  Sex: Female

DRUGS (13)
  1. TEDUGLUTIDE [Suspect]
     Active Substance: TEDUGLUTIDE
     Indication: Short-bowel syndrome
     Dosage: 0.400 MILLIGRAM, QD
     Route: 065
     Dates: start: 20190425, end: 20190924
  2. TEDUGLUTIDE [Suspect]
     Active Substance: TEDUGLUTIDE
     Indication: Short-bowel syndrome
     Dosage: 0.400 MILLIGRAM, QD
     Route: 065
     Dates: start: 20190425, end: 20190924
  3. TEDUGLUTIDE [Suspect]
     Active Substance: TEDUGLUTIDE
     Indication: Short-bowel syndrome
     Dosage: 0.400 MILLIGRAM, QD
     Route: 065
     Dates: start: 20190425, end: 20190924
  4. TEDUGLUTIDE [Suspect]
     Active Substance: TEDUGLUTIDE
     Indication: Short-bowel syndrome
     Dosage: 0.400 MILLIGRAM, QD
     Route: 065
     Dates: start: 20190425, end: 20190924
  5. TEDUGLUTIDE [Suspect]
     Active Substance: TEDUGLUTIDE
     Dosage: 0.520 MILLIGRAM, QD
     Route: 065
     Dates: start: 20190924, end: 20200312
  6. TEDUGLUTIDE [Suspect]
     Active Substance: TEDUGLUTIDE
     Dosage: 0.520 MILLIGRAM, QD
     Route: 065
     Dates: start: 20190924, end: 20200312
  7. TEDUGLUTIDE [Suspect]
     Active Substance: TEDUGLUTIDE
     Dosage: 0.520 MILLIGRAM, QD
     Route: 065
     Dates: start: 20190924, end: 20200312
  8. TEDUGLUTIDE [Suspect]
     Active Substance: TEDUGLUTIDE
     Dosage: 0.520 MILLIGRAM, QD
     Route: 065
     Dates: start: 20190924, end: 20200312
  9. TEDUGLUTIDE [Suspect]
     Active Substance: TEDUGLUTIDE
     Dosage: 0.6 MILLIGRAM, QD
     Route: 065
     Dates: start: 20200312
  10. TEDUGLUTIDE [Suspect]
     Active Substance: TEDUGLUTIDE
     Dosage: 0.6 MILLIGRAM, QD
     Route: 065
     Dates: start: 20200312
  11. TEDUGLUTIDE [Suspect]
     Active Substance: TEDUGLUTIDE
     Dosage: 0.6 MILLIGRAM, QD
     Route: 065
     Dates: start: 20200312
  12. TEDUGLUTIDE [Suspect]
     Active Substance: TEDUGLUTIDE
     Dosage: 0.6 MILLIGRAM, QD
     Route: 065
     Dates: start: 20200312
  13. ALBUMIN HUMAN [Concomitant]
     Active Substance: ALBUMIN HUMAN
     Indication: Premature baby
     Dosage: 20 MILLILITER
     Route: 042
     Dates: start: 20170908, end: 20170908

REACTIONS (1)
  - Colonoscopy [Recovered/Resolved]

NARRATIVE: CASE EVENT DATE: 20210412
